FAERS Safety Report 7794641-1 (Version None)
Quarter: 2011Q4

REPORT INFORMATION
  Report Type: 
  Country: None (occurrence: None)
  Receive Date: 20111004
  Receipt Date: 20110926
  Transmission Date: 20120403
  Serious: Yes (Hospitalization)
  Sender: FDA-Public Use
  Company Number: DE-ROCHE-796861

PATIENT
  Sex: Male

DRUGS (23)
  1. BLINDED ALEGLITAZAR [Suspect]
     Indication: CARDIOVASCULAR EVENT PROPHYLAXIS
     Dosage: LAST DOSE PRIOR TO SAE 08 JULY 2011, DOSE:BLINDED, THERAPY TEMPORARILY INTERRUPTED, FREQUENCY: QD
     Route: 048
  2. NEBIVOLOL HCL [Concomitant]
  3. AMLODIPINE [Concomitant]
  4. ALLOPURINOL [Concomitant]
  5. LIPROLOG [Concomitant]
  6. CLOPIDOGREL [Concomitant]
  7. LEVEMIR [Concomitant]
     Dosage: REPORTED AS LEVEMIR INSULIN
  8. OMEGA-3-ACID ETHYL ESTERS [Concomitant]
     Dates: start: 20110312, end: 20110509
  9. ALISKIREN [Concomitant]
  10. HYDROCHLOROTHIAZIDE [Concomitant]
  11. CATAPRES [Concomitant]
  12. BLINDED ALEGLITAZAR [Suspect]
     Dosage: LAST DOSE PRIOR TO SAE: 04 AUGUST 2011
     Route: 048
  13. TORASEMIDE [Suspect]
     Indication: PRODUCT USED FOR UNKNOWN INDICATION
     Route: 065
  14. AMLODIPINE [Concomitant]
     Dates: start: 20100108, end: 20110315
  15. SPIRONOLACTONE [Suspect]
     Indication: PRODUCT USED FOR UNKNOWN INDICATION
     Route: 065
  16. EZETIMIBE [Concomitant]
     Dosage: 10 - 40 MG
  17. VILDAGLIPTIN [Concomitant]
  18. DIOVAN [Concomitant]
     Dates: start: 20110108, end: 20110317
  19. ASPIRIN [Concomitant]
  20. METFORMIN HCL [Concomitant]
     Dates: start: 20100213, end: 20110311
  21. DIOVAN [Concomitant]
  22. PANTOPRAZOLE [Concomitant]
  23. NITROLINGUAL [Concomitant]
     Dosage: FREQUENCY: AS REQUIRED

REACTIONS (2)
  - HYPERKALAEMIA [None]
  - HYPERTENSIVE CRISIS [None]
